FAERS Safety Report 6016175-7 (Version None)
Quarter: 2008Q4

REPORT INFORMATION
  Report Type: 
  Country: None (occurrence: None)
  Receive Date: 20081222
  Receipt Date: 20081209
  Transmission Date: 20090506
  Serious: Yes (Other)
  Sender: FDA-Public Use
  Company Number: JP-PFIZER INC-2008069909

PATIENT
  Sex: Male
  Weight: 53 kg

DRUGS (10)
  1. DIFLUCAN [Suspect]
     Route: 048
     Dates: start: 20080528, end: 20080612
  2. RITUXAN [Concomitant]
     Route: 042
     Dates: start: 20080529, end: 20080529
  3. ENDOXAN [Concomitant]
     Route: 042
     Dates: start: 20080530, end: 20080530
  4. ADRIACIN [Concomitant]
     Route: 042
     Dates: start: 20080530, end: 20080530
  5. ONCOVIN [Concomitant]
     Route: 042
     Dates: start: 20080530, end: 20080530
  6. PREDONINE [Concomitant]
     Route: 048
     Dates: start: 20080530, end: 20080603
  7. TAKEPRON [Concomitant]
     Route: 048
     Dates: start: 20080528
  8. COTRIM [Concomitant]
     Route: 048
     Dates: start: 20080528
  9. PYRINAZIN [Concomitant]
     Route: 048
     Dates: start: 20080529, end: 20080529
  10. POLARAMINE [Concomitant]
     Route: 048
     Dates: start: 20080529, end: 20080529

REACTIONS (1)
  - DIABETES INSIPIDUS [None]
